FAERS Safety Report 6272406-X (Version None)
Quarter: 2009Q3

REPORT INFORMATION
  Report Type: 
  Country: None (occurrence: None)
  Receive Date: 20090717
  Receipt Date: 20090507
  Transmission Date: 20100115
  Serious: Yes (Other)
  Sender: FDA-Public Use
  Company Number: US-MERCK-0905USA00972

PATIENT
  Sex: Male

DRUGS (4)
  1. JANUVIA [Suspect]
     Indication: DIABETES MELLITUS
     Route: 048
     Dates: start: 20090318
  2. INDERAL [Concomitant]
     Route: 065
  3. MAXZIDE [Concomitant]
     Route: 065
  4. ASPIRIN [Concomitant]
     Route: 065
     Dates: end: 20090401

REACTIONS (4)
  - CEREBROVASCULAR ACCIDENT [None]
  - PRURITUS GENERALISED [None]
  - RASH ERYTHEMATOUS [None]
  - RASH GENERALISED [None]
